FAERS Safety Report 4698286-1 (Version None)
Quarter: 2005Q2

REPORT INFORMATION
  Report Type: 
  Country: None (occurrence: None)
  Receive Date: 20050621
  Receipt Date: 20050531
  Transmission Date: 20051028
  Serious: Yes (Death)
  Sender: FDA-Public Use
  Company Number: WAES 0506TUR00007

PATIENT
  Age: 5 Year
  Sex: Male

DRUGS (2)
  1. INJ COSMOGEN (DACTINOMYCIN) [Suspect]
     Indication: NEPHROBLASTOMA
  2. VINCRISTINE SULFATE [Concomitant]

REACTIONS (3)
  - LUNG DISORDER [None]
  - MALIGNANT NEOPLASM PROGRESSION [None]
  - NEPHROBLASTOMA [None]
